FAERS Safety Report 4431228-2 (Version None)
Quarter: 2004Q3

REPORT INFORMATION
  Report Type: 
  Country: None (occurrence: None)
  Receive Date: 20040818
  Receipt Date: 20040806
  Transmission Date: 20050211
  Serious: Yes (Other)
  Sender: FDA-Public Use
  Company Number: 2004053447

PATIENT
  Age: 52 Year
  Sex: Male
  Weight: 120 kg

DRUGS (3)
  1. NEURONTIN [Suspect]
     Indication: NEUROPATHY
     Dosage: 1800 MG (600 MG, 3 IN 1 D), ORAL
     Route: 048
     Dates: start: 20040301, end: 20040402
  2. ROFECOXIB [Concomitant]
  3. FLUVASTATIN SODIUM (FLUVASTATIN SODIUM) [Concomitant]

REACTIONS (2)
  - EXANTHEM [None]
  - LEUKOCYTOCLASTIC VASCULITIS [None]
